FAERS Safety Report 6477183-5 (Version None)
Quarter: 2009Q4

REPORT INFORMATION
  Report Type: 
  Country: None (occurrence: None)
  Receive Date: 20091204
  Receipt Date: 20091204
  Transmission Date: 20100525
  Serious: Yes (Other)
  Sender: FDA-Public Use
  Company Number: None

PATIENT
  Age: 51 Year
  Sex: Female

DRUGS (2)
  1. LEVAQUIN [Suspect]
     Dosage: ONE A DAY
  2. AVELOX [Suspect]
     Indication: BRONCHITIS
     Dosage: ONE A DAY
     Dates: start: 20091201, end: 20091201

REACTIONS (3)
  - FLUSHING [None]
  - HYPERHIDROSIS [None]
  - VOMITING [None]
